FAERS Safety Report 4338480-2 (Version None)
Quarter: 2004Q2

REPORT INFORMATION
  Report Type: 
  Country: None (occurrence: None)
  Receive Date: 20040414
  Receipt Date: 20031219
  Transmission Date: 20050107
  Serious: Yes (Hospitalization)
  Sender: FDA-Public Use
  Company Number: US-GLAXOSMITHKLINE-A0443752A

PATIENT
  Age: 79 Year
  Sex: Male

DRUGS (5)
  1. BACTROBAN [Suspect]
     Indication: RHINITIS
     Route: 045
  2. HYDROCHLOROTHIAZIDE [Concomitant]
     Indication: BLOOD PRESSURE
  3. MULTIVITAMIN [Concomitant]
  4. XALATAN [Concomitant]
  5. ERYTHROMYCIN EYE OINTMENT [Concomitant]

REACTIONS (7)
  - DEHYDRATION [None]
  - DIZZINESS [None]
  - DYSPEPSIA [None]
  - MALAISE [None]
  - NAUSEA [None]
  - PERICARDIAL EFFUSION [None]
  - PERICARDITIS [None]
